FAERS Safety Report 16734713 (Version 3)
Quarter: 2019Q4

REPORT INFORMATION
  Report Type: Spontaneous
  Country: PT (occurrence: PT)
  Receive Date: 20190823
  Receipt Date: 20191023
  Transmission Date: 20200122
  Serious: Yes (Other)
  Sender: FDA-Public Use
  Company Number: PT-009507513-1908PRT006050

PATIENT
  Age: 66 Year
  Sex: Male

DRUGS (3)
  1. SINEMET [Suspect]
     Active Substance: CARBIDOPA\LEVODOPA
     Indication: PARKINSON^S DISEASE
     Dosage: ONE-TAB THREE TIMES PER DAY
     Route: 048
  2. SINEMET [Suspect]
     Active Substance: CARBIDOPA\LEVODOPA
     Dosage: TWO TABS FIVE TIMES A DAY
     Route: 048
  3. SINEMET [Suspect]
     Active Substance: CARBIDOPA\LEVODOPA
     Dosage: REDUCTION IN THE INDIVIDUAL DOSES OF LEVODOPA FROM 200 MG TO 150 MG
     Route: 048

REACTIONS (6)
  - Humerus fracture [Unknown]
  - Freezing phenomenon [Recovering/Resolving]
  - Dyskinesia [Recovering/Resolving]
  - Fall [Recovering/Resolving]
  - Femur fracture [Unknown]
  - Balance disorder [Recovered/Resolved]
